FAERS Safety Report 8347886-6 (Version None)
Quarter: 2012Q2

REPORT INFORMATION
  Report Type: 
  Country: None (occurrence: None)
  Receive Date: 20120509
  Receipt Date: 20120427
  Transmission Date: 20120825
  Serious: Yes (Life-Threatening, Hospitalization)
  Sender: FDA-Public Use
  Company Number: FR-BAYER-2011-000612

PATIENT
  Age: 55 Year
  Sex: Male

DRUGS (11)
  1. CIPROFLOXACIN HYDROCHLORIDE [Suspect]
     Indication: PRODUCT USED FOR UNKNOWN INDICATION
     Dosage: DAILY DOSE 400 MG
     Dates: start: 20091222, end: 20091223
  2. NICARDIPINE HYDROCHLORIDE [Concomitant]
     Dosage: 1 TAB MORNING, 1 TAB EVENING
  3. TOBRAMYCIN [Suspect]
     Indication: PRODUCT USED FOR UNKNOWN INDICATION
     Dosage: UNK
     Dates: start: 20091220
  4. CIPROFLOXACIN HYDROCHLORIDE [Suspect]
     Dosage: DAILY DOSE 400 MG
     Dates: start: 20091226, end: 20100101
  5. GENTAMICIN [Concomitant]
     Dosage: DAILY DOSE 150 MG
     Route: 042
     Dates: start: 20100122, end: 20100122
  6. CIPROFLOXACIN HYDROCHLORIDE [Suspect]
     Dosage: 400 MG, BID
     Route: 042
     Dates: start: 20091224, end: 20091226
  7. IMIPENEM AND CILASTATIN SODIUM [Suspect]
     Dosage: 500 MG, BID
     Route: 042
     Dates: start: 20100124, end: 20100124
  8. IMOVANE [Concomitant]
     Dosage: 1 TAB EVENING
  9. FLUCONAZOLE [Concomitant]
     Indication: ANTIBIOTIC THERAPY
     Dosage: UNK
     Dates: start: 20091226
  10. CIPROFLOXACIN HYDROCHLORIDE [Suspect]
     Dosage: DAILY DOSE 200 MG
     Dates: start: 20100102, end: 20100121
  11. PREVISCAN [Concomitant]
     Indication: PRODUCT USED FOR UNKNOWN INDICATION
     Dosage: 1 TAB + 3/4 TAB

REACTIONS (4)
  - GRAND MAL CONVULSION [None]
  - OVERDOSE [None]
  - HYPOTENSION [None]
  - METABOLIC ACIDOSIS [None]
